FAERS Safety Report 5760832-4 (Version None)
Quarter: 2008Q2

REPORT INFORMATION
  Report Type: 
  Country: None (occurrence: None)
  Receive Date: 20080606
  Receipt Date: 20080527
  Transmission Date: 20081010
  Serious: Yes (Hospitalization, Other)
  Sender: FDA-Public Use
  Company Number: US-ROCHE-486438

PATIENT
  Sex: Male

DRUGS (1)
  1. ROFERON-A [Suspect]
     Indication: MACULAR DEGENERATION
     Route: 065

REACTIONS (2)
  - MACULAR DEGENERATION [None]
  - UNEVALUABLE EVENT [None]
